FAERS Safety Report 20184408 (Version 1)
Quarter: 2021Q4

REPORT INFORMATION
  Report Type: Spontaneous
  Country: US (occurrence: US)
  Receive Date: 20211214
  Receipt Date: 20211214
  Transmission Date: 20220303
  Serious: Yes (Hospitalization)
  Sender: FDA-Public Use
  Company Number: US-AMNEAL PHARMACEUTICALS-2021-AMRX-01352

PATIENT
  Sex: Female

DRUGS (4)
  1. RYTARY [Suspect]
     Active Substance: CARBIDOPA\LEVODOPA
     Indication: Product used for unknown indication
     Dosage: 36.25-145MG, 1 CAPSULES, 4 /DAY
     Route: 048
     Dates: end: 20210416
  2. RYTARY [Suspect]
     Active Substance: CARBIDOPA\LEVODOPA
     Dosage: 36.25-145MG 1 CAPSULES, 2 /DAY (1ST AND 3RD DOSE)
     Route: 048
     Dates: start: 20210416, end: 2021
  3. RYTARY [Suspect]
     Active Substance: CARBIDOPA\LEVODOPA
     Dosage: 23.75-95MG 1 CAPSULES, 2 /DAY (2ND AND 4TH DOSE)
     Route: 048
     Dates: start: 20210416, end: 2021
  4. RYTARY [Suspect]
     Active Substance: CARBIDOPA\LEVODOPA
     Dosage: 23.75-95MG 1 CAPSULES, 4 /DAY
     Route: 048
     Dates: start: 20211130

REACTIONS (2)
  - Adverse event [Unknown]
  - Weight increased [Unknown]
